FAERS Safety Report 8993293 (Version 1)
Quarter: 2013Q1

REPORT INFORMATION
  Report Type: Spontaneous
  Country: US (occurrence: US)
  Receive Date: 20130102
  Receipt Date: 20130102
  Transmission Date: 20140127
  Serious: No
  Sender: FDA-Public Use
  Company Number: US-PFIZER INC-2012333318

PATIENT
  Age: 27 Year
  Sex: Male
  Weight: 102 kg

DRUGS (2)
  1. LYRICA [Suspect]
     Dosage: 75 MG, 3X/DAY
     Route: 048
     Dates: start: 20121217
  2. OXYCONTIN [Concomitant]
     Dosage: UNK

REACTIONS (2)
  - Sexual dysfunction [Unknown]
  - Ejaculation failure [Unknown]
